FAERS Safety Report 13910931 (Version 1)
Quarter: 2017Q3

REPORT INFORMATION
  Report Type: Spontaneous
  Country: US (occurrence: None)
  Receive Date: 20170825
  Receipt Date: 20170825
  Transmission Date: 20171127
  Serious: Yes (Hospitalization)
  Sender: FDA-Public Use
  Company Number: None

PATIENT
  Age: 50 Year
  Sex: Male
  Weight: 102 kg

DRUGS (2)
  1. DEXAMETHASONE. [Concomitant]
     Active Substance: DEXAMETHASONE
  2. TEMOZOLOMIDE. [Suspect]
     Active Substance: TEMOZOLOMIDE
     Dates: end: 20170519

REACTIONS (10)
  - Cellulitis [None]
  - Erythema [None]
  - Blister [None]
  - Fall [None]
  - Abscess [None]
  - Muscular weakness [None]
  - Necrotising soft tissue infection [None]
  - Skin discolouration [None]
  - Skin infection [None]
  - Staphylococcus test positive [None]

NARRATIVE: CASE EVENT DATE: 20170601
